FAERS Safety Report 9393671 (Version 4)
Quarter: 2013Q3

REPORT INFORMATION
  Report Type: Report from Study
  Country: DE (occurrence: DE)
  Receive Date: 20130710
  Receipt Date: 20130926
  Transmission Date: 20140515
  Serious: Yes (Hospitalization, Other)
  Sender: FDA-Public Use
  Company Number: DE-GLAXOSMITHKLINE-Z0020256A

PATIENT
  Age: 75 Year
  Sex: Male
  Weight: 99.5 kg

DRUGS (7)
  1. TRAMETINIB [Suspect]
     Indication: MALIGNANT MELANOMA
     Dosage: 2MG PER DAY
     Route: 048
     Dates: start: 20130320
  2. DABRAFENIB [Suspect]
     Indication: MALIGNANT MELANOMA
     Dosage: 150MG TWICE PER DAY
     Route: 048
     Dates: start: 20130320
  3. TRIAMCINOLONE ACETONIDE [Concomitant]
     Indication: LOCAL ANAESTHESIA
     Dosage: .1PCT SINGLE DOSE
     Route: 058
     Dates: start: 20130611, end: 20130611
  4. TRIAMCINOLONE ACETONIDE [Concomitant]
     Indication: LOCAL ANAESTHESIA
     Dosage: .1PCT SINGLE DOSE
     Route: 058
     Dates: start: 20130715, end: 20130715
  5. CEFUROXIM [Concomitant]
     Indication: EAR INFECTION
     Dosage: 1.5G THREE TIMES PER DAY
     Route: 042
     Dates: start: 20130717, end: 20130722
  6. CEFUROXIM [Concomitant]
     Indication: EAR INFECTION
     Dosage: 500MG TWICE PER DAY
     Route: 048
     Dates: start: 20130723, end: 20130727
  7. FRAXIPARIN [Concomitant]
     Indication: THROMBOSIS PROPHYLAXIS
     Dosage: .4ML PER DAY
     Route: 058
     Dates: start: 20130716, end: 20130722

REACTIONS (1)
  - Squamous cell carcinoma [Recovered/Resolved]
